FAERS Safety Report 18652053 (Version 1)
Quarter: 2020Q4

REPORT INFORMATION
  Report Type: Spontaneous
  Country: US (occurrence: US)
  Receive Date: 20201222
  Receipt Date: 20201222
  Transmission Date: 20210114
  Serious: Yes (Hospitalization)
  Sender: FDA-Public Use
  Company Number: US-ALVA-AMCO PHARMACAL COMPANIES, INC.-2103346

PATIENT

DRUGS (1)
  1. PSORIASIN DEEP MOISTURIZING [Suspect]
     Active Substance: COAL TAR
     Route: 061

REACTIONS (1)
  - Dermatitis infected [Unknown]
